FAERS Safety Report 5270618-5 (Version None)
Quarter: 2007Q1

REPORT INFORMATION
  Report Type: 
  Country: None (occurrence: None)
  Receive Date: 20061213
  Receipt Date: 20031119
  Transmission Date: 20070707
  Serious: Yes (Other)
  Sender: FDA-Public Use
  Company Number: 2003UW15359

PATIENT
  Age: 50 Year
  Sex: Female
  Weight: 63.5036 kg

DRUGS (6)
  1. IRESSA [Suspect]
     Indication: LUNG NEOPLASM MALIGNANT
     Dosage: 250 MG PO
     Route: 048
     Dates: start: 20031031
  2. TOPROL-XL [Concomitant]
  3. LIPITOR [Concomitant]
  4. PREVACID [Concomitant]
  5. LEXAPRO [Concomitant]
  6. PAXIL [Concomitant]

REACTIONS (2)
  - HEADACHE [None]
  - INSOMNIA [None]
